FAERS Safety Report 16735302 (Version 3)
Quarter: 2019Q3

REPORT INFORMATION
  Report Type: Spontaneous
  Country: US (occurrence: US)
  Receive Date: 20190823
  Receipt Date: 20190829
  Transmission Date: 20191005
  Serious: Yes (Other)
  Sender: FDA-Public Use
  Company Number: US-PFIZER INC-2019359271

PATIENT
  Age: 34 Year
  Sex: Male

DRUGS (2)
  1. HALDOL [Concomitant]
     Active Substance: HALOPERIDOL
     Dosage: UNK
  2. NAVANE [Suspect]
     Active Substance: THIOTHIXENE
     Dosage: UNK

REACTIONS (7)
  - Tremor [Unknown]
  - Joint dislocation [Unknown]
  - Tardive dyskinesia [Unknown]
  - Erectile dysfunction [Unknown]
  - Dystonia [Unknown]
  - Reduced facial expression [Unknown]
  - Feeling abnormal [Unknown]
